FAERS Safety Report 7960223 (Version 2)
Quarter: 2012Q4

REPORT INFORMATION
  Report Type: 
  Country: JP (occurrence: JP)
  Receive Date: 20110525
  Receipt Date: 20120904
  Transmission Date: 20130627
  Serious: Yes (Death, Other)
  Sender: FDA-Public Use
  Company Number: JP-JNJFOC-20110510616

PATIENT
  Age: 81 Year
  Sex: Female

DRUGS (3)
  1. ITRACONAZOLE [Suspect]
     Indication: PROPHYLAXIS
     Route: 048
     Dates: start: 20081128, end: 20081222
  2. ITRACONAZOLE [Suspect]
     Indication: FEBRILE NEUTROPENIA
     Route: 048
     Dates: start: 20081128, end: 20081222
  3. CHEMOTHERAPY [Suspect]
     Indication: PRODUCT USED FOR UNKNOWN INDICATION
     Route: 065

REACTIONS (3)
  - Respiratory failure [Fatal]
  - Multi-organ failure [Fatal]
  - Trichosporon infection [Not Recovered/Not Resolved]
